FAERS Safety Report 9321205 (Version 2)
Quarter: 2013Q2

REPORT INFORMATION
  Report Type: Spontaneous
  Country: US (occurrence: None)
  Receive Date: 20130528
  Receipt Date: 20130528
  Transmission Date: 20140414
  Serious: Yes (Hospitalization)
  Sender: FDA-Public Use
  Company Number: 2013AP000023

PATIENT
  Age: 19 Year
  Sex: Female
  Weight: 49.4 kg

DRUGS (5)
  1. FERRIPROX [Suspect]
     Indication: SICKLE CELL ANAEMIA
     Route: 048
     Dates: start: 20120614, end: 20121223
  2. FERRIPROX [Suspect]
     Indication: HAEMOCHROMATOSIS
     Route: 048
     Dates: start: 20120614, end: 20121223
  3. HYDROXYUREA [Suspect]
     Indication: SICKLE CELL ANAEMIA
     Dates: start: 2009
  4. HYDROXYUREA [Concomitant]
  5. EXJADE [Concomitant]

REACTIONS (3)
  - Agranulocytosis [None]
  - Staphylococcal infection [None]
  - Device related infection [None]
